FAERS Safety Report 8581499-6 (Version None)
Quarter: 2012Q3

REPORT INFORMATION
  Report Type: 
  Country: None (occurrence: None)
  Receive Date: 20120809
  Receipt Date: 20120807
  Transmission Date: 20120928
  Serious: Yes (Hospitalization)
  Sender: FDA-Public Use
  Company Number: US-PFIZER INC-2012192330

PATIENT
  Age: 45 Year
  Sex: Male
  Weight: 65.76 kg

DRUGS (2)
  1. AMLODIPINE [Suspect]
     Indication: HYPERTENSION
     Dosage: 10 MG, DAILY
     Dates: end: 20120731
  2. PERCOCET [Concomitant]
     Indication: INTERVERTEBRAL DISC PROTRUSION
     Dosage: 10/325 MG, 4X/DAY

REACTIONS (2)
  - MYOCARDIAL INFARCTION [None]
  - ANXIETY [None]
